FAERS Safety Report 10109915 (Version 1)
Quarter: 2014Q2

REPORT INFORMATION
  Report Type: Spontaneous
  Country: TW (occurrence: TW)
  Receive Date: 20140425
  Receipt Date: 20140425
  Transmission Date: 20141212
  Serious: Yes (Death)
  Sender: FDA-Public Use
  Company Number: PHHY2014TW047934

PATIENT
  Age: 24 Year
  Sex: Male
  Weight: 88 kg

DRUGS (1)
  1. GLIVEC [Suspect]
     Indication: GASTROINTESTINAL STROMAL TUMOUR
     Dates: start: 20060723

REACTIONS (34)
  - Acute lung injury [Fatal]
  - Pleural effusion [Fatal]
  - Lung infiltration [Fatal]
  - Acute respiratory failure [Fatal]
  - Hypoxia [Fatal]
  - Carbon dioxide increased [Fatal]
  - Dyspnoea [Fatal]
  - Acidosis [Fatal]
  - Duodenal ulcer [Fatal]
  - Abdominal distension [Fatal]
  - Abdominal wall haemorrhage [Fatal]
  - Anuria [Fatal]
  - Hydronephrosis [Fatal]
  - Malnutrition [Fatal]
  - Infection [Fatal]
  - Haemoglobin decreased [Fatal]
  - White blood cell count increased [Fatal]
  - Pneumothorax [Fatal]
  - Subcutaneous emphysema [Fatal]
  - Anaemic hypoxia [Fatal]
  - Tachycardia [Fatal]
  - Hypotension [Fatal]
  - Pneumonia [Fatal]
  - Hypothermia [Fatal]
  - Acute respiratory distress syndrome [Fatal]
  - Body temperature increased [Fatal]
  - Body temperature decreased [Fatal]
  - C-reactive protein increased [Fatal]
  - Platelet count decreased [Fatal]
  - Septic shock [Fatal]
  - Sepsis [Fatal]
  - Hepatomegaly [Fatal]
  - Drug resistance [Fatal]
  - Transfusion-related acute lung injury [Fatal]
